FAERS Safety Report 14425329 (Version 1)
Quarter: 2018Q1

REPORT INFORMATION
  Report Type: Spontaneous
  Country: US (occurrence: US)
  Receive Date: 20180123
  Receipt Date: 20180123
  Transmission Date: 20180509
  Serious: No
  Sender: FDA-Public Use
  Company Number: US-HERITAGE PHARMACEUTICALS-2017HTG00324

PATIENT
  Age: 46 Year
  Sex: Male
  Weight: 68.27 kg

DRUGS (11)
  1. ENTRESTO [Concomitant]
     Active Substance: SACUBITRIL\VALSARTAN
     Dosage: 1 DOSAGE UNITS, 2X/DAY
  2. ASPIRIN. [Concomitant]
     Active Substance: ASPIRIN
     Dosage: 81 MG, 1X/DAY
  3. METHIMAZOLE. [Suspect]
     Active Substance: METHIMAZOLE
     Indication: HYPERTHYROIDISM
     Dosage: UNK, 1X/DAY
     Route: 048
     Dates: start: 20170531, end: 2017
  4. METHIMAZOLE. [Suspect]
     Active Substance: METHIMAZOLE
     Dosage: 25 MG, 1X/DAY
     Route: 048
     Dates: start: 2017, end: 2017
  5. ALPRAZOLAM. [Concomitant]
     Active Substance: ALPRAZOLAM
     Dosage: 0.125 MG, 2X/DAY
  6. CARVEDILOL. [Concomitant]
     Active Substance: CARVEDILOL
     Dosage: 25 MG, 2X/DAY
  7. METHIMAZOLE. [Suspect]
     Active Substance: METHIMAZOLE
     Dosage: 15 MG, 1X/DAY
     Route: 048
     Dates: start: 201709, end: 201709
  8. METHIMAZOLE. [Suspect]
     Active Substance: METHIMAZOLE
     Dosage: 5 MG, 1X/DAY
     Route: 048
     Dates: start: 201710, end: 20171007
  9. FUROSEMIDE. [Concomitant]
     Active Substance: FUROSEMIDE
     Dosage: 20 MG, EVERY 3 OR 4 DAYS
  10. METHIMAZOLE. [Suspect]
     Active Substance: METHIMAZOLE
     Dosage: 20 MG, 1X/DAY
     Route: 048
     Dates: start: 2017, end: 201709
  11. METHIMAZOLE. [Suspect]
     Active Substance: METHIMAZOLE
     Dosage: 10 MG, 1X/DAY
     Route: 048
     Dates: start: 201709, end: 201709

REACTIONS (7)
  - Swelling [Recovering/Resolving]
  - Salivary gland enlargement [Recovering/Resolving]
  - Joint swelling [Recovering/Resolving]
  - Discomfort [Unknown]
  - Blood cholesterol increased [Unknown]
  - Malaise [Recovered/Resolved]
  - Lymphadenopathy [Recovering/Resolving]

NARRATIVE: CASE EVENT DATE: 2017
